FAERS Safety Report 9707749 (Version 1)
Quarter: 2013Q4

REPORT INFORMATION
  Report Type: Spontaneous
  Country: US (occurrence: US)
  Receive Date: 20131125
  Receipt Date: 20131125
  Transmission Date: 20140711
  Serious: Yes (Other)
  Sender: FDA-Public Use
  Company Number: US-PFIZER INC-2013331692

PATIENT
  Age: 51 Year
  Sex: Female

DRUGS (4)
  1. FLUOROURACIL [Suspect]
     Indication: SMALL INTESTINE ADENOCARCINOMA
     Dosage: UNK
     Route: 042
  2. OXALIPLATIN [Suspect]
     Indication: SMALL INTESTINE ADENOCARCINOMA
     Dosage: UNK
     Route: 042
  3. IRINOTECAN HCL [Suspect]
     Indication: SMALL INTESTINE ADENOCARCINOMA
     Dosage: UNK
     Route: 042
  4. LEUCOVORIN [Suspect]
     Indication: SMALL INTESTINE ADENOCARCINOMA
     Dosage: UNK
     Route: 042

REACTIONS (1)
  - Intracardiac thrombus [Recovered/Resolved]
